FAERS Safety Report 7607345-2 (Version None)
Quarter: 2011Q3

REPORT INFORMATION
  Report Type: 
  Country: None (occurrence: None)
  Receive Date: 20110713
  Receipt Date: 20110708
  Transmission Date: 20111222
  Serious: Yes (Death)
  Sender: FDA-Public Use
  Company Number: US-CELGENEUS-163-21880-11061098

PATIENT
  Sex: Female

DRUGS (9)
  1. OMEPRAZOLE [Concomitant]
     Route: 065
  2. DOXEPIN [Concomitant]
     Route: 065
  3. VERPAMIL HCL [Concomitant]
     Route: 065
  4. PREDNISONE [Concomitant]
     Route: 065
  5. REVLIMID [Suspect]
     Indication: LYMPHOMA
     Dosage: 25 MILLIGRAM
     Route: 048
     Dates: start: 20101112, end: 20101223
  6. RANITIDINE [Concomitant]
     Route: 065
  7. LISINOPRIL [Concomitant]
     Route: 065
  8. METOPROLOL SUCCINATE [Concomitant]
     Route: 065
  9. METFORMIN HCL [Concomitant]
     Route: 065

REACTIONS (1)
  - LYMPHOMA [None]
